FAERS Safety Report 24592345 (Version 2)
Quarter: 2024Q4

REPORT INFORMATION
  Report Type: Report from Study
  Country: US (occurrence: US)
  Receive Date: 20241108
  Receipt Date: 20241130
  Transmission Date: 20250114
  Serious: Yes (Other)
  Sender: ABBVIE
  Company Number: US-ABBVIE-5987982

PATIENT
  Age: 70 Year
  Sex: Female

DRUGS (1)
  1. RESTASIS [Suspect]
     Active Substance: CYCLOSPORINE
     Indication: Dry eye
     Dosage: 2 DROPS IN EACH EYE?FORM STRENGTH- 0.5MG/ML
     Route: 047
     Dates: start: 202101

REACTIONS (9)
  - Cataract [Unknown]
  - Abnormal sensation in eye [Unknown]
  - Dry eye [Not Recovered/Not Resolved]
  - Vision blurred [Unknown]
  - Eyelid irritation [Unknown]
  - Foreign body sensation in eyes [Unknown]
  - Feeling abnormal [Unknown]
  - Visual impairment [Unknown]
  - Eye disorder [Unknown]

NARRATIVE: CASE EVENT DATE: 20240601
